FAERS Safety Report 4431414-1 (Version None)
Quarter: 2004Q3

REPORT INFORMATION
  Report Type: 
  Country: None (occurrence: None)
  Receive Date: 20040818
  Receipt Date: 20040802
  Transmission Date: 20050211
  Serious: Yes (Hospitalization)
  Sender: FDA-Public Use
  Company Number: A01200403722

PATIENT
  Sex: Male

DRUGS (6)
  1. ISCOVER              (CLOPIDOGREL SULFATE) [Suspect]
  2. ZOCOR [Concomitant]
  3. IMDUR [Concomitant]
  4. THYROXINE (LEVOTHYROXINE) [Concomitant]
  5. NORVASC [Concomitant]
  6. PROGOUT (ALLOPURINOL) [Concomitant]

REACTIONS (4)
  - ABDOMINAL PAIN UPPER [None]
  - ARRHYTHMIA [None]
  - EPISTAXIS [None]
  - FLATULENCE [None]
